FAERS Safety Report 5236488-6 (Version None)
Quarter: 2007Q1

REPORT INFORMATION
  Report Type: 
  Country: None (occurrence: None)
  Receive Date: 20070208
  Receipt Date: 20070205
  Transmission Date: 20070707
  Serious: Yes (Other)
  Sender: FDA-Public Use
  Company Number: 2007-00439

PATIENT
  Age: 86 Year
  Sex: Male

DRUGS (1)
  1. TRELSTAR [Suspect]
     Indication: PROSTATE CANCER METASTATIC
     Dosage: 11.25 MG, INTRAMUSCULAR
     Route: 030

REACTIONS (4)
  - BLINDNESS [None]
  - BLOOD PHOSPHORUS INCREASED [None]
  - CALCINOSIS [None]
  - CORNEAL DEPOSITS [None]
